FAERS Safety Report 18234858 (Version 3)
Quarter: 2021Q1

REPORT INFORMATION
  Report Type: Spontaneous
  Country: US (occurrence: US)
  Receive Date: 20200904
  Receipt Date: 20210303
  Transmission Date: 20210419
  Serious: Yes (Death, Hospitalization)
  Sender: FDA-Public Use
  Company Number: US-TEVA-2020-US-1824075

PATIENT
  Age: 64 Year
  Sex: Female
  Weight: 68.03 kg

DRUGS (11)
  1. METFORMIN [Concomitant]
     Active Substance: METFORMIN HYDROCHLORIDE
     Indication: DIABETES MELLITUS
     Route: 048
     Dates: start: 20191001
  2. VALSARTAN W/HYDROCHLOROTHIAZIDE [Suspect]
     Active Substance: HYDROCHLOROTHIAZIDE\VALSARTAN
     Indication: HYPERTENSION
     Dosage: 160/25 MILLIGRAM, ONE TABLET BY MOUTH EVERY DAY
     Route: 048
     Dates: end: 20160606
  3. VALSARTAN/HYDROCHLOROTHIAZIDE AUROBINDO [Suspect]
     Active Substance: HYDROCHLOROTHIAZIDE\VALSARTAN
     Dosage: 160/ 25 MILLIGRAM
     Route: 065
     Dates: start: 20170608, end: 20171005
  4. VALSARTAN/HYDROCHLOROTHIAZIDE AUROBINDO [Suspect]
     Active Substance: HYDROCHLOROTHIAZIDE\VALSARTAN
     Indication: HYPERTENSION
     Dosage: 160/25 MILLIGRAM
     Route: 065
     Dates: start: 20160428, end: 20160612
  5. VALSARTAN/HYDROCHLOROTHIAZIDE AUROBINDO [Suspect]
     Active Substance: HYDROCHLOROTHIAZIDE\VALSARTAN
     Dosage: 160/25 MILLIGRAM
     Route: 065
     Dates: start: 20170508, end: 20170607
  6. DIOVAN HCT [Suspect]
     Active Substance: HYDROCHLOROTHIAZIDE\VALSARTAN
     Dosage: 160/25 MG
     Route: 065
  7. VALSARTAN/HYDROCHLOROTHIAZIDE AUROBINDO [Suspect]
     Active Substance: HYDROCHLOROTHIAZIDE\VALSARTAN
     Dosage: 160/25 MILLIGRAM
     Route: 065
     Dates: start: 20161229, end: 20170429
  8. VALSARTAN/HYDROCHLOROTHIAZIDE SOLCO [Suspect]
     Active Substance: HYDROCHLOROTHIAZIDE\VALSARTAN
     Indication: HYPERTENSION
     Dosage: 160/25 MILLIGRAM
     Route: 065
     Dates: start: 20160824, end: 20160923
  9. VALSARTAN/HYDROCHLOROTHIAZIDE AUROBINDO [Suspect]
     Active Substance: HYDROCHLOROTHIAZIDE\VALSARTAN
     Dosage: 160/ 25 MILLIGRAM
     Route: 065
     Dates: start: 20161001, end: 20161031
  10. VALSARTAN/HYDROCHLOROTHIAZIDE AUROBINDO [Suspect]
     Active Substance: HYDROCHLOROTHIAZIDE\VALSARTAN
     Dosage: 160/25 MILLIGRAM
     Route: 065
     Dates: start: 20171230, end: 20180308
  11. VALSARTAN /HYDROCHLOROTHIAZIDE TEVA [Suspect]
     Active Substance: HYDROCHLOROTHIAZIDE\VALSARTAN
     Indication: HYPERTENSION
     Dosage: 160/25 MILLIGRAM, ONE TABLET BY MOUTH EVERY DAY.
     Route: 048
     Dates: start: 20141111, end: 20141208

REACTIONS (2)
  - Hepatic cancer [Fatal]
  - Pancreatic neuroendocrine tumour [Fatal]
